FAERS Safety Report 7138726-1 (Version None)
Quarter: 2010Q4

REPORT INFORMATION
  Report Type: 
  Country: None (occurrence: None)
  Receive Date: 20101201
  Receipt Date: 20101201
  Transmission Date: 20110411
  Serious: Yes (Hospitalization)
  Sender: FDA-Public Use
  Company Number: None

PATIENT
  Age: 59 Year
  Sex: Male
  Weight: 77.1 kg

DRUGS (11)
  1. ALIMTA [Suspect]
     Indication: SARCOMA
     Dosage: 990 MG Q2 WKS. IV
     Route: 042
     Dates: start: 20101027
  2. ALIMTA [Suspect]
     Indication: SARCOMA
     Dosage: 990 MG Q2 WKS. IV
     Route: 042
     Dates: start: 20101124
  3. TAXOTERE [Suspect]
     Indication: SARCOMA
     Dosage: 79 2 MG Q2 WKS. IV
     Route: 042
     Dates: start: 20101027
  4. TAXOTERE [Suspect]
     Indication: SARCOMA
     Dosage: 79 2 MG Q2 WKS. IV
     Route: 042
     Dates: start: 20101124
  5. FOLIC ACID [Concomitant]
  6. VITAMIN B-12 [Concomitant]
  7. METFORMIN [Concomitant]
  8. OXYCODONE [Concomitant]
  9. SIMVASTATIN [Concomitant]
  10. GLUMEPIRIDE [Concomitant]
  11. METOPROLOL TARTRATE [Concomitant]

REACTIONS (2)
  - ATRIAL FIBRILLATION [None]
  - VENTRICULAR EXTRASYSTOLES [None]
